FAERS Safety Report 22041286 (Version 3)
Quarter: 2023Q2

REPORT INFORMATION
  Report Type: Spontaneous
  Country: US (occurrence: US)
  Receive Date: 20230227
  Receipt Date: 20230419
  Transmission Date: 20230722
  Serious: Yes (Death, Hospitalization, Other)
  Sender: FDA-Public Use
  Company Number: US-PFIZER INC-PV202300036868

PATIENT
  Age: 83 Year
  Sex: Female
  Weight: 63.946 kg

DRUGS (1)
  1. IBRANCE [Suspect]
     Active Substance: PALBOCICLIB
     Indication: Breast cancer female
     Dosage: 100 MG, 1X/DAY (FREQUENCY: QD)
     Route: 048
     Dates: start: 20220930

REACTIONS (2)
  - Neoplasm progression [Fatal]
  - Pneumonia [Fatal]
